FAERS Safety Report 6641512-X (Version None)
Quarter: 2010Q1

REPORT INFORMATION
  Report Type: 
  Country: None (occurrence: None)
  Receive Date: 20100318
  Receipt Date: 20100312
  Transmission Date: 20100710
  Serious: Yes (Other)
  Sender: FDA-Public Use
  Company Number: DE-AMGEN-QUU388653

PATIENT
  Sex: Female
  Weight: 56 kg

DRUGS (2)
  1. NEUPOGEN [Suspect]
     Indication: DRUG USE FOR UNKNOWN INDICATION
     Route: 058
     Dates: start: 20091213, end: 20091217
  2. PARACETAMOL [Concomitant]
     Route: 048
     Dates: start: 20091214, end: 20091216

REACTIONS (2)
  - BLOOD STEM CELL HARVEST FAILURE [None]
  - DRUG INEFFECTIVE [None]
